FAERS Safety Report 24871335 (Version 1)
Quarter: 2025Q1

REPORT INFORMATION
  Report Type: Spontaneous
  Country: US (occurrence: US)
  Receive Date: 20250122
  Receipt Date: 20250122
  Transmission Date: 20250409
  Serious: Yes (Life-Threatening, Hospitalization)
  Sender: CHEPLAPHARM
  Company Number: US-CHEPLA-2025000846

PATIENT
  Sex: Female

DRUGS (3)
  1. OLANZAPINE [Suspect]
     Active Substance: OLANZAPINE
  2. TRAZODONE [Concomitant]
     Active Substance: TRAZODONE HYDROCHLORIDE
  3. WELLBUTRIN [Concomitant]
     Active Substance: BUPROPION HYDROCHLORIDE

REACTIONS (8)
  - Coma [Unknown]
  - Pneumonia [Unknown]
  - Noninfective encephalitis [Unknown]
  - Cardiac disorder [Unknown]
  - Renal impairment [Unknown]
  - Haemoglobin decreased [Unknown]
  - Withdrawal syndrome [Unknown]
  - General physical health deterioration [Unknown]
